FAERS Safety Report 14286376 (Version 1)
Quarter: 2017Q4

REPORT INFORMATION
  Report Type: Spontaneous
  Country: US (occurrence: US)
  Receive Date: 20171214
  Receipt Date: 20171214
  Transmission Date: 20180321
  Serious: No
  Sender: FDA-Public Use
  Company Number: US-ASTELLAS-2017US028612

PATIENT
  Age: 52 Year
  Sex: Female

DRUGS (1)
  1. TARCEVA [Suspect]
     Active Substance: ERLOTINIB HYDROCHLORIDE
     Indication: SMALL CELL LUNG CANCER
     Dosage: 150 MG, ONCE DAILY (1 TABLET BY MOUTH DAILY)
     Route: 048

REACTIONS (3)
  - Stomatitis [Unknown]
  - Pruritus [Unknown]
  - Rash [Unknown]
